FAERS Safety Report 7414586-6 (Version None)
Quarter: 2011Q2

REPORT INFORMATION
  Report Type: 
  Country: None (occurrence: None)
  Receive Date: 20110414
  Receipt Date: 20110408
  Transmission Date: 20111010
  Serious: Yes (Disabling, Other)
  Sender: FDA-Public Use
  Company Number: US-BRISTOL-MYERS SQUIBB COMPANY-15591175

PATIENT
  Age: 58 Year
  Sex: Female
  Weight: 107 kg

DRUGS (15)
  1. PLAVIX [Concomitant]
  2. SIMVASTATIN [Concomitant]
  3. CELEXA [Concomitant]
  4. ABILIFY [Suspect]
     Indication: MOOD SWINGS
     Route: 048
     Dates: start: 20070202, end: 20070901
  5. ABILIFY [Suspect]
     Indication: MENTAL DISORDER
     Route: 048
     Dates: start: 20070202, end: 20070901
  6. LISINOPRIL [Concomitant]
  7. ABILIFY [Suspect]
     Indication: BIPOLAR DISORDER
     Route: 048
     Dates: start: 20070202, end: 20070901
  8. METOPROLOL TARTRATE [Concomitant]
  9. ISOSORBIDE DINITRATE [Concomitant]
  10. XANAX [Concomitant]
  11. LAMICTAL [Concomitant]
  12. AMBIEN [Concomitant]
  13. EFFEXOR XR [Concomitant]
  14. ENBREL [Concomitant]
  15. METFORMIN [Concomitant]

REACTIONS (4)
  - JOINT CONTRACTURE [None]
  - MUSCLE ATROPHY [None]
  - MUSCLE SPASMS [None]
  - TREMOR [None]
